FAERS Safety Report 10648430 (Version 1)
Quarter: 2014Q4

REPORT INFORMATION
  Report Type: Spontaneous
  Country: US (occurrence: US)
  Receive Date: 20141212
  Receipt Date: 20141212
  Transmission Date: 20150529
  Serious: Yes (Hospitalization, Other)
  Sender: FDA-Public Use
  Company Number: US-JNJFOC-20141206665

PATIENT
  Age: 17 Year
  Sex: Female
  Weight: 22.68 kg

DRUGS (4)
  1. REMICADE [Suspect]
     Active Substance: INFLIXIMAB
     Indication: CROHN^S DISEASE
     Dosage: 3 YEARS PRIOR TO THE DATE OF THIS REPORT
     Route: 042
     Dates: start: 2011
  2. REMICADE [Suspect]
     Active Substance: INFLIXIMAB
     Indication: CROHN^S DISEASE
     Route: 042
     Dates: start: 20141204
  3. PEDIALYTE [Suspect]
     Active Substance: DEXTROSE\ELECTROLYTES NOS
     Indication: ENTERAL NUTRITION
     Route: 065
     Dates: start: 20141204
  4. REMICADE [Suspect]
     Active Substance: INFLIXIMAB
     Indication: CROHN^S DISEASE
     Dosage: 8 YEARS PRIOR TO THE DATE OF THIS REPORT
     Route: 042
     Dates: start: 2006

REACTIONS (13)
  - Blood glucose increased [Recovered/Resolved]
  - Blood sodium increased [Unknown]
  - Adverse event [Unknown]
  - Upper limb fracture [Unknown]
  - Blood potassium decreased [Unknown]
  - Anaemia [Unknown]
  - Blood potassium increased [Unknown]
  - Abnormal faeces [Unknown]
  - Seizure [Unknown]
  - Gastrointestinal motility disorder [Unknown]
  - Pyrexia [Recovered/Resolved]
  - Feeling abnormal [Not Recovered/Not Resolved]
  - Blood sodium decreased [Unknown]

NARRATIVE: CASE EVENT DATE: 201411
